FAERS Safety Report 20391362 (Version 1)
Quarter: 2022Q1

REPORT INFORMATION
  Report Type: Spontaneous
  Country: US (occurrence: None)
  Receive Date: 20220128
  Receipt Date: 20220128
  Transmission Date: 20220423
  Serious: Yes (Hospitalization)
  Sender: FDA-Public Use
  Company Number: None

PATIENT
  Age: 3 Year
  Sex: Female
  Weight: 31.3 kg

DRUGS (6)
  1. DAUNORUBICIN [Suspect]
     Active Substance: DAUNORUBICIN
     Dates: end: 20220119
  2. DEXAMETHASONE [Suspect]
     Active Substance: DEXAMETHASONE
     Dates: end: 20220125
  3. ONCASPAR [Suspect]
     Active Substance: PEGASPARGASE
     Dates: end: 20220114
  4. VINCRISTINE SULFATE [Suspect]
     Active Substance: VINCRISTINE SULFATE
     Dates: end: 20220119
  5. CYTARABINE [Suspect]
     Active Substance: CYTARABINE
     Dates: end: 20220112
  6. METHOTREXATE [Suspect]
     Active Substance: METHOTREXATE
     Dates: end: 20220119

REACTIONS (15)
  - Colitis [None]
  - Rales [None]
  - Pulmonary oedema [None]
  - Hyponatraemia [None]
  - Hypocalcaemia [None]
  - Acidosis [None]
  - Seizure [None]
  - Septic shock [None]
  - Bradycardia [None]
  - Haemorrhage intracranial [None]
  - Anaemia [None]
  - Febrile neutropenia [None]
  - Appendix disorder [None]
  - Thrombocytopenia [None]
  - Hypoperfusion [None]

NARRATIVE: CASE EVENT DATE: 20220126
